FAERS Safety Report 14513633 (Version 1)
Quarter: 2018Q1

REPORT INFORMATION
  Report Type: Spontaneous
  Country: US (occurrence: US)
  Receive Date: 20180209
  Receipt Date: 20180209
  Transmission Date: 20180509
  Serious: No
  Sender: FDA-Public Use
  Company Number: US-ALLERGAN-1774189US

PATIENT
  Age: 70 Year
  Sex: Male
  Weight: 32.2 kg

DRUGS (5)
  1. RESTASIS [Suspect]
     Active Substance: CYCLOSPORINE
     Dosage: UNK
  2. CLEAR EYES [Concomitant]
     Active Substance: NAPHAZOLINE HYDROCHLORIDE
     Indication: DRY EYE
     Dosage: UNK
     Route: 047
  3. RESTASIS [Suspect]
     Active Substance: CYCLOSPORINE
     Indication: DRY EYE
     Dosage: 1 GTT, BID
     Route: 047
     Dates: start: 20171217
  4. RESTASIS [Suspect]
     Active Substance: CYCLOSPORINE
     Dosage: 2 GTT, BID
     Route: 047
  5. SYSTANE (HYPROMELLOSE 2910 (4000 MPA.S)) [Concomitant]
     Active Substance: HYPROMELLOSE 2910 (4000 MPA.S)
     Indication: DRY EYE
     Dosage: UNK
     Route: 047

REACTIONS (6)
  - Product dropper issue [Unknown]
  - Incorrect dose administered [Unknown]
  - Eye irritation [Not Recovered/Not Resolved]
  - Drug dose omission [Unknown]
  - Product use complaint [Unknown]
  - Product container issue [Unknown]

NARRATIVE: CASE EVENT DATE: 201712
